FAERS Safety Report 4866702-8 (Version None)
Quarter: 2005Q4

REPORT INFORMATION
  Report Type: 
  Country: None (occurrence: None)
  Receive Date: 20051221
  Receipt Date: 20051215
  Transmission Date: 20060501
  Serious: Yes (Other)
  Sender: FDA-Public Use
  Company Number: S05-IRL-05648-01

PATIENT
  Age: 82 Year
  Sex: Female

DRUGS (3)
  1. ESCITALOPRAM OXALATE [Suspect]
     Indication: MAJOR DEPRESSION
     Dosage: 20 MG QD PO
     Route: 048
     Dates: start: 20050809, end: 20050908
  2. ARIPIPRAZOLE [Suspect]
     Indication: MAJOR DEPRESSION
     Dosage: 10 MG QD PO
     Route: 048
     Dates: start: 20050809, end: 20050828
  3. AMLODIPINE BESYLATE [Concomitant]

REACTIONS (6)
  - CONVULSION [None]
  - HYPOKINESIA [None]
  - HYPOTENSION [None]
  - PUPIL FIXED [None]
  - SALIVARY HYPERSECRETION [None]
  - TREMOR [None]
